FAERS Safety Report 20806480 (Version 1)
Quarter: 2022Q2

REPORT INFORMATION
  Report Type: Spontaneous
  Country: US (occurrence: US)
  Receive Date: 20220510
  Receipt Date: 20220510
  Transmission Date: 20220720
  Serious: No
  Sender: FDA-Public Use
  Company Number: US-ALLERGAN-2210429US

PATIENT

DRUGS (1)
  1. VUITY [Suspect]
     Active Substance: PILOCARPINE HYDROCHLORIDE
     Indication: Product used for unknown indication
     Dosage: UNK
     Dates: start: 202203

REACTIONS (4)
  - Mydriasis [Unknown]
  - Visual impairment [Unknown]
  - Vision blurred [Unknown]
  - Eye pain [Unknown]

NARRATIVE: CASE EVENT DATE: 20220301
